FAERS Safety Report 18741661 (Version 9)
Quarter: 2021Q3

REPORT INFORMATION
  Report Type: Report from Study
  Country: US (occurrence: US)
  Receive Date: 20210114
  Receipt Date: 20210719
  Transmission Date: 20211014
  Serious: Yes (Other)
  Sender: FDA-Public Use
  Company Number: NVSC2021US007594

PATIENT
  Sex: Male

DRUGS (5)
  1. COSENTYX [Suspect]
     Active Substance: SECUKINUMAB
     Dosage: 300 MG, QW
     Route: 058
  2. COSENTYX [Suspect]
     Active Substance: SECUKINUMAB
     Dosage: 300 MG, QMO
     Route: 058
  3. COSENTYX [Suspect]
     Active Substance: SECUKINUMAB
     Dosage: 300 MG, QW
     Route: 058
  4. COSENTYX [Suspect]
     Active Substance: SECUKINUMAB
     Dosage: 300 MG, QMO
     Route: 058
  5. COSENTYX [Suspect]
     Active Substance: SECUKINUMAB
     Indication: PSORIASIS
     Dosage: 300 MG, QW
     Route: 058

REACTIONS (18)
  - Gastric ulcer [Unknown]
  - Epistaxis [Unknown]
  - Pruritus [Unknown]
  - Manufacturing product storage issue [Unknown]
  - Nervousness [Unknown]
  - Pain [Unknown]
  - Psoriasis [Unknown]
  - Dyspnoea [Unknown]
  - Stress [Unknown]
  - Product distribution issue [Unknown]
  - Hyperhidrosis [Unknown]
  - Skin papilloma [Unknown]
  - Skin exfoliation [Unknown]
  - Abdominal pain upper [Unknown]
  - Nasopharyngitis [Unknown]
  - Plasma cell myeloma [Unknown]
  - Eczema [Unknown]
  - Inflammation [Unknown]
